FAERS Safety Report 6302635-8 (Version None)
Quarter: 2009Q3

REPORT INFORMATION
  Report Type: 
  Country: None (occurrence: None)
  Receive Date: 20090810
  Receipt Date: 20090803
  Transmission Date: 20100115
  Serious: Yes (Other)
  Sender: FDA-Public Use
  Company Number: US-BAYER-200912569BCC

PATIENT
  Age: 81 Year
  Sex: Male

DRUGS (2)
  1. ASPIRIN [Suspect]
     Indication: UNEVALUABLE EVENT
     Route: 048
  2. CLOPIDOGREL [Suspect]
     Indication: CORONARY ARTERY BYPASS
     Dosage: TOTAL DAILY DOSE: 75 MG  UNIT DOSE: 75 MG
     Route: 048
     Dates: start: 20000101

REACTIONS (1)
  - GINGIVAL BLEEDING [None]
